FAERS Safety Report 7028746-X (Version None)
Quarter: 2010Q3

REPORT INFORMATION
  Report Type: 
  Country: None (occurrence: None)
  Receive Date: 20100830
  Receipt Date: 20100820
  Transmission Date: 20110219
  Serious: Yes (Death, Other)
  Sender: FDA-Public Use
  Company Number: 2010026137

PATIENT
  Sex: Male
  Weight: 78.3 kg

DRUGS (10)
  1. ALBURX [Suspect]
     Indication: PLASMAPHERESIS
     Dosage: (INTRAVENOUS (NOT OTHERWISE SPECIFIED))
     Route: 042
     Dates: start: 20100726, end: 20100726
  2. ALBURX [Suspect]
     Indication: PLASMAPHERESIS
     Dosage: (INTRAVENOUS (NOT OTHERWISE SPECIFIED))
     Route: 042
     Dates: start: 20100727, end: 20100727
  3. ATROVASTATIN (ATROVASTATIN) [Concomitant]
  4. RAPAMUNE [Concomitant]
  5. PREDNISONE [Concomitant]
  6. FUROSEMIDE [Concomitant]
  7. PROGRAF [Concomitant]
  8. LISINOPRIL [Concomitant]
  9. MYCOPHENOLATE (CELLCEPT) [Concomitant]
  10. ASPIRIN [Concomitant]

REACTIONS (2)
  - CARDIAC FAILURE [None]
  - COMPLICATIONS OF TRANSPLANTED HEART [None]
